FAERS Safety Report 25892814 (Version 1)
Quarter: 2025Q4

REPORT INFORMATION
  Report Type: Report from Study
  Country: US (occurrence: US)
  Receive Date: 20251007
  Receipt Date: 20251007
  Transmission Date: 20260117
  Serious: Yes (Hospitalization)
  Sender: BAUSCH AND LOMB
  Company Number: US-BAUSCHBL-2025BNL029361

PATIENT

DRUGS (1)
  1. MIEBO [Suspect]
     Active Substance: PERFLUOROHEXYLOCTANE
     Indication: Product used for unknown indication
     Dates: start: 20240306, end: 20250517

REACTIONS (6)
  - Surgery [Unknown]
  - Fall [Unknown]
  - Dry eye [Unknown]
  - Fracture [Unknown]
  - Visual impairment [Unknown]
  - Product delivery mechanism issue [Unknown]
